FAERS Safety Report 26195119 (Version 1)
Quarter: 2025Q4

REPORT INFORMATION
  Report Type: Spontaneous
  Country: EU (occurrence: EU)
  Receive Date: 20251224
  Receipt Date: 20251224
  Transmission Date: 20260117
  Serious: Yes (Other)
  Sender: RANBAXY
  Company Number: EU-SUN PHARMACEUTICAL INDUSTRIES LTD-2025R1-543247

PATIENT
  Age: 8 Year

DRUGS (1)
  1. PREGABALIN [Suspect]
     Active Substance: PREGABALIN
     Indication: Affective disorder
     Dosage: UNK
     Route: 065

REACTIONS (3)
  - Major depression [Unknown]
  - Off label use [Unknown]
  - Suicidal ideation [Unknown]
